FAERS Safety Report 8155974-2 (Version None)
Quarter: 2012Q1

REPORT INFORMATION
  Report Type: 
  Country: None (occurrence: None)
  Receive Date: 20120216
  Receipt Date: 20120206
  Transmission Date: 20120608
  Serious: Yes (Hospitalization, Other)
  Sender: FDA-Public Use
  Company Number: 2012P1004344

PATIENT
  Age: 12 Year
  Sex: Male

DRUGS (1)
  1. PREDNISOLONE [Suspect]
     Indication: NEPHROTIC SYNDROME
     Dosage: 2 MG/KG;QD, 2 MG/KG;QD

REACTIONS (13)
  - IMPAIRED SELF-CARE [None]
  - PSYCHOTIC DISORDER [None]
  - EMOTIONAL DISORDER [None]
  - FEAR [None]
  - PARANOIA [None]
  - ABNORMAL BEHAVIOUR [None]
  - PERSECUTORY DELUSION [None]
  - FLAT AFFECT [None]
  - TREATMENT NONCOMPLIANCE [None]
  - POVERTY OF SPEECH [None]
  - MOVEMENT DISORDER [None]
  - SOCIAL PROBLEM [None]
  - CATATONIA [None]
